FAERS Safety Report 6751345-1 (Version None)
Quarter: 2010Q2

REPORT INFORMATION
  Report Type: 
  Country: None (occurrence: None)
  Receive Date: 20100602
  Receipt Date: 20100525
  Transmission Date: 20101027
  Serious: Yes (Hospitalization)
  Sender: FDA-Public Use
  Company Number: CH-SANOFI-AVENTIS-2010SA030635

PATIENT
  Age: 70 Year
  Sex: Female

DRUGS (11)
  1. PLAVIX [Suspect]
     Indication: ARTERIAL STENT INSERTION
     Route: 048
     Dates: start: 20100201
  2. PLAVIX [Suspect]
     Route: 048
     Dates: start: 20100101
  3. SINTROM [Concomitant]
     Indication: ATRIAL FIBRILLATION
  4. ASPIRIN [Concomitant]
     Indication: DRUG USE FOR UNKNOWN INDICATION
  5. BILOL [Concomitant]
     Indication: DRUG USE FOR UNKNOWN INDICATION
  6. ATORVASTATIN [Concomitant]
     Indication: DRUG USE FOR UNKNOWN INDICATION
  7. LISINOPRIL [Concomitant]
     Indication: DRUG USE FOR UNKNOWN INDICATION
  8. ZOLPIDEM [Concomitant]
     Indication: DRUG USE FOR UNKNOWN INDICATION
  9. MALTOFER [Concomitant]
     Indication: DRUG USE FOR UNKNOWN INDICATION
  10. FOLIC ACID [Concomitant]
     Indication: DRUG USE FOR UNKNOWN INDICATION
  11. PRASUGREL [Concomitant]

REACTIONS (4)
  - APLASTIC ANAEMIA [None]
  - CONDITION AGGRAVATED [None]
  - LEUKOPENIA [None]
  - OFF LABEL USE [None]
